FAERS Safety Report 6671126-7 (Version None)
Quarter: 2010Q2

REPORT INFORMATION
  Report Type: 
  Country: None (occurrence: None)
  Receive Date: 20100406
  Receipt Date: 20100406
  Transmission Date: 20101027
  Serious: No
  Sender: FDA-Public Use
  Company Number: None

PATIENT
  Age: 55 Year
  Sex: Female
  Weight: 58.9676 kg

DRUGS (2)
  1. FENTANYL [Suspect]
     Indication: COLONOSCOPY
     Dosage: FENTANYL IV IV DRIP
     Route: 041
     Dates: start: 20090707, end: 20090707
  2. VERSED [Suspect]
     Dosage: VERSED IV IV DRIP
     Route: 041

REACTIONS (3)
  - INCORRECT DOSE ADMINISTERED [None]
  - MALAISE [None]
  - MEDICATION ERROR [None]
